FAERS Safety Report 8138276-X (Version None)
Quarter: 2012Q1

REPORT INFORMATION
  Report Type: 
  Country: None (occurrence: None)
  Receive Date: 20120215
  Receipt Date: 20120205
  Transmission Date: 20120608
  Serious: Yes (Hospitalization)
  Sender: FDA-Public Use
  Company Number: TW-SANOFI-AVENTIS-2012SA008072

PATIENT
  Age: 27 Year
  Sex: Female

DRUGS (13)
  1. METHYLPREDNISOLONE [Concomitant]
     Indication: ANKYLOSING SPONDYLITIS
     Route: 042
  2. ZOLPIDEM TARTRATE [Suspect]
     Indication: MOOD SWINGS
     Dosage: 10-20 MG
     Route: 065
  3. ZOLPIDEM TARTRATE [Suspect]
     Route: 065
  4. ZOLPIDEM TARTRATE [Suspect]
     Route: 065
  5. FLUOXETINE [Concomitant]
     Indication: DEPRESSION
  6. ZOLPIDEM TARTRATE [Suspect]
     Indication: ANXIETY
     Dosage: 10-20 MG
     Route: 065
  7. ZOLPIDEM TARTRATE [Suspect]
     Dosage: 100-200 MG
     Route: 065
  8. ANALGESICS [Concomitant]
     Indication: ANKYLOSING SPONDYLITIS
  9. ZOLPIDEM TARTRATE [Suspect]
     Route: 065
  10. ZOLPIDEM TARTRATE [Suspect]
     Dosage: 100-200 MG
     Route: 065
  11. ZOLPIDEM TARTRATE [Suspect]
     Indication: INSOMNIA
     Dosage: 10-20 MG
     Route: 065
  12. ZOLPIDEM TARTRATE [Suspect]
     Dosage: 100-200 MG
     Route: 065
  13. PREDNISOLONE [Concomitant]
     Dosage: 5-10 MG
     Route: 048

REACTIONS (16)
  - TREMOR [None]
  - MASKED FACIES [None]
  - CATATONIA [None]
  - HYPERHIDROSIS [None]
  - TACHYCARDIA [None]
  - STARING [None]
  - WAXY FLEXIBILITY [None]
  - DRUG WITHDRAWAL SYNDROME [None]
  - DRUG ABUSE [None]
  - HYPERTENSION [None]
  - IMMOBILE [None]
  - PROTRUSION TONGUE [None]
  - MUTISM [None]
  - MUSCLE RIGIDITY [None]
  - DROOLING [None]
  - STUPOR [None]
